FAERS Safety Report 14807453 (Version 4)
Quarter: 2019Q3

REPORT INFORMATION
  Report Type: Report from Study
  Country: DE (occurrence: DE)
  Receive Date: 20180425
  Receipt Date: 20190701
  Transmission Date: 20191004
  Serious: Yes (Death, Other)
  Sender: FDA-Public Use
  Company Number: DE-ROCHE-2111310

PATIENT
  Age: 56 Year
  Sex: Female
  Weight: 71 kg

DRUGS (4)
  1. PACLITAXEL. [Concomitant]
     Active Substance: PACLITAXEL
     Dosage: SUBSEQUENT DOSES WERE RECEIVED ON 29/MAR/2011, 05/APR/2011, 12/APR/2011, 19/APR/2011, 26/APR/2011, 0
     Route: 065
     Dates: start: 20110322
  2. BEVACIZUMAB. [Suspect]
     Active Substance: BEVACIZUMAB
     Indication: BREAST CANCER
     Route: 065
     Dates: start: 20110322, end: 20110531
  3. PACLITAXEL. [Concomitant]
     Active Substance: PACLITAXEL
     Dosage: SUBSEQUENT DOSES WERE RECEIVED ON 24/MAY/2011, 31/MAY/2011.
     Route: 065
  4. PACLITAXEL. [Concomitant]
     Active Substance: PACLITAXEL
     Route: 065

REACTIONS (2)
  - Cardiac failure [Recovering/Resolving]
  - Cardiac failure [Fatal]

NARRATIVE: CASE EVENT DATE: 201111
